FAERS Safety Report 9353630 (Version 2)
Quarter: 2013Q3

REPORT INFORMATION
  Report Type: Spontaneous
  Country: FR (occurrence: FR)
  Receive Date: 20130618
  Receipt Date: 20130729
  Transmission Date: 20140515
  Serious: Yes (Hospitalization)
  Sender: FDA-Public Use
  Company Number: FR-AMGEN-FRASP2013042317

PATIENT
  Age: 61 Year
  Sex: Female

DRUGS (11)
  1. NEULASTA [Suspect]
     Indication: PRODUCT USED FOR UNKNOWN INDICATION
     Dosage: UNK
     Route: 065
  2. NIVOLUMAB [Suspect]
     Indication: METASTATIC MALIGNANT MELANOMA
     Dosage: 3 MG/KG, EVERY 2 WEEKS
     Route: 042
     Dates: start: 20130412
  3. DACARBAZINE [Suspect]
     Indication: METASTATIC MALIGNANT MELANOMA
     Dosage: 1000 MG/M2, EVERY 3 WEEKS
     Route: 042
     Dates: start: 20130412
  4. PLACEBO [Suspect]
     Indication: METASTATIC MALIGNANT MELANOMA
     Dosage: UNK
     Route: 042
     Dates: start: 20130412
  5. OXYNORM [Concomitant]
     Dosage: UNK
  6. ZOLPIDEM                           /00914902/ [Concomitant]
     Dosage: UNK
  7. TRANSIPEG                          /01618701/ [Concomitant]
     Dosage: UNK
  8. MORPHINE [Concomitant]
     Dosage: UNK
  9. ALPRAZOLAM [Concomitant]
     Dosage: UNK
  10. DOLIPRANE [Concomitant]
     Dosage: UNK
  11. PRIMPERAN [Concomitant]
     Dosage: UNK

REACTIONS (1)
  - Bone pain [Recovered/Resolved]
